FAERS Safety Report 5787422-1 (Version None)
Quarter: 2008Q2

REPORT INFORMATION
  Report Type: 
  Country: None (occurrence: None)
  Receive Date: 20080625
  Receipt Date: 20080605
  Transmission Date: 20081010
  Serious: Yes (Disabling)
  Sender: FDA-Public Use
  Company Number: GB-ASTRAZENECA-2008SE03163

PATIENT
  Age: 14 Year
  Sex: Female

DRUGS (1)
  1. AMIAS [Suspect]
     Indication: HYPERTENSION
     Route: 065

REACTIONS (2)
  - HYPERTRICHOSIS [None]
  - PRURITUS GENERALISED [None]
